FAERS Safety Report 25601101 (Version 4)
Quarter: 2025Q4

REPORT INFORMATION
  Report Type: Spontaneous
  Country: EU (occurrence: EU)
  Receive Date: 20250724
  Receipt Date: 20251028
  Transmission Date: 20260118
  Serious: Yes (Other)
  Sender: AUROBINDO
  Company Number: EU-SUN PHARMACEUTICAL INDUSTRIES LTD-2025R1-515791

PATIENT
  Age: 12 Year
  Sex: Male

DRUGS (2)
  1. CEFUROXIME [Suspect]
     Active Substance: CEFUROXIME
     Indication: Bronchitis
     Dosage: UNK
     Route: 048
  2. CEFUROXIME [Suspect]
     Active Substance: CEFUROXIME
     Indication: Pneumonia

REACTIONS (2)
  - Vomiting [Recovered/Resolved]
  - Drug intolerance [Recovered/Resolved]
